FAERS Safety Report 8356940-4 (Version None)
Quarter: 2012Q2

REPORT INFORMATION
  Report Type: 
  Country: None (occurrence: None)
  Receive Date: 20120514
  Receipt Date: 20120224
  Transmission Date: 20120825
  Serious: Yes (Hospitalization, Other)
  Sender: FDA-Public Use
  Company Number: US-BAYER-2011-038349

PATIENT
  Age: 32 Year
  Sex: Female
  Weight: 154 kg

DRUGS (9)
  1. TUSSIONEX [Concomitant]
     Route: 048
  2. HYDROCODONE BITARTRATE AND ACETAMINOPHEN [Concomitant]
     Route: 048
  3. PROMETHAZINE [Concomitant]
     Route: 048
  4. AMBIEN [Concomitant]
     Dosage: 10 MG, UNK
     Route: 048
  5. YASMIN [Suspect]
     Indication: PREMENSTRUAL SYNDROME
  6. HUMIBID DM [Concomitant]
     Route: 048
  7. YASMIN [Suspect]
     Indication: ORAL CONTRACEPTION
     Dosage: UNK
     Dates: start: 20030101, end: 20040101
  8. YASMIN [Suspect]
     Indication: ACNE
  9. ZITHROMAX [Concomitant]
     Route: 048

REACTIONS (10)
  - PAIN [None]
  - DEEP VEIN THROMBOSIS [None]
  - SPLENIC INFARCTION [None]
  - QUALITY OF LIFE DECREASED [None]
  - THROMBOSIS [None]
  - GALLBLADDER DISORDER [None]
  - FEAR [None]
  - ANHEDONIA [None]
  - INJURY [None]
  - ANXIETY [None]
